FAERS Safety Report 9265232 (Version 2)
Quarter: 2013Q3

REPORT INFORMATION
  Report Type: Spontaneous
  Country: DE (occurrence: DE)
  Receive Date: 20130501
  Receipt Date: 20130715
  Transmission Date: 20140515
  Serious: Yes (Hospitalization, Other)
  Sender: FDA-Public Use
  Company Number: DE-BRISTOL-MYERS SQUIBB COMPANY-17220864

PATIENT
  Age: 62 Year
  Sex: Female
  Weight: 50 kg

DRUGS (1)
  1. YERVOY [Suspect]
     Route: 042
     Dates: start: 201210

REACTIONS (2)
  - Colitis [Recovering/Resolving]
  - Cerebral ischaemia [Unknown]
